FAERS Safety Report 9887663 (Version 2)
Quarter: 2014Q1

REPORT INFORMATION
  Report Type: Spontaneous
  Country: CA (occurrence: CA)
  Receive Date: 20140211
  Receipt Date: 20140228
  Transmission Date: 20141002
  Serious: Yes (Other)
  Sender: FDA-Public Use
  Company Number: CA-AMGEN-CANSP2014009088

PATIENT
  Age: 66 Year
  Sex: Female

DRUGS (12)
  1. ENBREL [Suspect]
     Indication: RHEUMATOID ARTHRITIS
     Dosage: 50 MG, QWK
     Route: 065
     Dates: start: 20120221
  2. LEFLUNOMIDE [Concomitant]
     Dosage: UNK
  3. PREDNISONE [Concomitant]
     Dosage: UNK
  4. COVERSYL                           /00790702/ [Concomitant]
     Dosage: UNK
  5. SYNTHROID [Concomitant]
     Dosage: UNK
  6. HYDROXYCHLOROQUINE [Concomitant]
     Dosage: UNK
  7. TECTA [Concomitant]
     Dosage: UNK
  8. CIPRALEX                           /01588501/ [Concomitant]
     Dosage: UNK
  9. BUTRANS                            /00444001/ [Concomitant]
     Dosage: UNK
  10. CALCIUM + VITAMIN D                /01483701/ [Concomitant]
     Dosage: UNK
  11. VITALUX PLUS LUTEIN OMEGA 3 [Concomitant]
     Dosage: UNK
  12. OXYCOCET [Concomitant]
     Dosage: UNK

REACTIONS (1)
  - Pneumothorax [Recovered/Resolved]
